FAERS Safety Report 4980576-6 (Version None)
Quarter: 2006Q2

REPORT INFORMATION
  Report Type: 
  Country: None (occurrence: None)
  Receive Date: 20060424
  Receipt Date: 20050330
  Transmission Date: 20061013
  Serious: Yes (Other)
  Sender: FDA-Public Use
  Company Number: US-MERCK-0504USA00153

PATIENT
  Sex: Female
  Weight: 92 kg

DRUGS (4)
  1. VIOXX [Suspect]
     Indication: PAIN IN EXTREMITY
     Route: 048
     Dates: start: 20011001, end: 20020801
  2. VIOXX [Suspect]
     Route: 048
     Dates: start: 20011001, end: 20020801
  3. TYLENOL (CAPLET) [Concomitant]
     Route: 065
  4. ADVIL [Concomitant]
     Route: 065

REACTIONS (15)
  - ACUTE CORONARY SYNDROME [None]
  - ACUTE MYOCARDIAL INFARCTION [None]
  - ALANINE AMINOTRANSFERASE DECREASED [None]
  - ASPARTATE AMINOTRANSFERASE DECREASED [None]
  - BLOOD CHOLESTEROL INCREASED [None]
  - BLOOD TRIGLYCERIDES INCREASED [None]
  - BREAST CYST [None]
  - COLONIC POLYP [None]
  - FATIGUE [None]
  - GASTRITIS [None]
  - GASTROOESOPHAGEAL REFLUX DISEASE [None]
  - GLYCOSYLATED HAEMOGLOBIN INCREASED [None]
  - ISCHAEMIC CARDIOMYOPATHY [None]
  - NEURITIS [None]
  - PERIPHERAL ARTERIAL OCCLUSIVE DISEASE [None]
